FAERS Safety Report 5114742-6 (Version None)
Quarter: 2006Q3

REPORT INFORMATION
  Report Type: 
  Country: None (occurrence: None)
  Receive Date: 20060921
  Receipt Date: 20060905
  Transmission Date: 20061208
  Serious: Yes (Hospitalization)
  Sender: FDA-Public Use
  Company Number: 229882

PATIENT
  Age: 54 Year
  Sex: Female

DRUGS (6)
  1. AVASTIN [Suspect]
     Indication: COLON CANCER METASTATIC
     Dosage: 5 MG, INTRAVENOUS
     Route: 042
     Dates: start: 20060726, end: 20060726
  2. FLUOROURACIL [Suspect]
     Indication: COLON CANCER METASTATIC
     Dosage: INTRAVENOUS
     Route: 042
     Dates: start: 20060724, end: 20060725
  3. CAMPTOSAR [Suspect]
     Indication: COLON CANCER METASTATIC
     Dosage: 150 MG, INTRAVENOUS
     Route: 042
     Dates: start: 20060724, end: 20060724
  4. ZOFRAN [Suspect]
     Indication: COLON CANCER METASTATIC
     Dosage: 8 MG, INTRAVENOUS
     Route: 042
     Dates: start: 20060724, end: 20060726
  5. ATROPINE [Suspect]
     Indication: COLON CANCER METASTATIC
     Dosage: 0.25 MG, SUBCUTANEOUS
     Route: 058
     Dates: start: 20060724, end: 20060724
  6. ELVORINE (LEVOLEUCOVORIN CALCIUM) [Suspect]
     Indication: COLON CANCER METASTATIC
     Dosage: 100 MG, INTRAVENOUS
     Route: 042
     Dates: start: 20060724, end: 20060725

REACTIONS (5)
  - BLOOD LACTATE DEHYDROGENASE INCREASED [None]
  - DRUG INEFFECTIVE [None]
  - RENAL FAILURE ACUTE [None]
  - RENAL TUBULAR NECROSIS [None]
  - VENOUS THROMBOSIS [None]
